FAERS Safety Report 10881619 (Version 2)
Quarter: 2015Q1

REPORT INFORMATION
  Report Type: Spontaneous
  Country: NL (occurrence: NL)
  Receive Date: 20150303
  Receipt Date: 20150304
  Transmission Date: 20150721
  Serious: Yes (Hospitalization)
  Sender: FDA-Public Use
  Company Number: NL-TEVA-542508ISR

PATIENT
  Age: 53 Year
  Sex: Male
  Weight: 81 kg

DRUGS (4)
  1. FOLIUMZUUR TABLET 5MG [Concomitant]
     Active Substance: FOLIC ACID
     Dosage: TWICE WEEKLY ONE PIECE
     Route: 048
     Dates: start: 20100929, end: 20150102
  2. METHOTREXATE [Suspect]
     Active Substance: METHOTREXATE
     Indication: RHEUMATOID ARTHRITIS
     Route: 048
     Dates: start: 20100929
  3. ARCOXIA TABLET FILMOMHULD  90MG [Concomitant]
     Dosage: TWICE DAILY ONE PIECE
     Route: 048
     Dates: start: 20100929, end: 20140110
  4. NEXIUM TABLET MSR 20MG [Concomitant]
     Dosage: 20 MILLIGRAM DAILY; ONCE DAILY ONE PIECE, GASTRO-RESISTANT TABLET
     Route: 048
     Dates: start: 20100929

REACTIONS (1)
  - Tendon rupture [Recovered/Resolved]

NARRATIVE: CASE EVENT DATE: 20120120
